FAERS Safety Report 5017118-5 (Version None)
Quarter: 2006Q2

REPORT INFORMATION
  Report Type: 
  Country: None (occurrence: None)
  Receive Date: 20060602
  Receipt Date: 20060515
  Transmission Date: 20061013
  Serious: Yes (Life-Threatening)
  Sender: FDA-Public Use
  Company Number: PR-AVENTIS-200615196GDDC

PATIENT
  Age: 61 Year
  Sex: Male
  Weight: 96.4 kg

DRUGS (8)
  1. GLIMEPIRIDE [Suspect]
  2. NPH INSULIN [Suspect]
     Route: 058
  3. ROSIGLITAZONE [Suspect]
  4. LISINOPRIL [Concomitant]
  5. ASPIRIN [Concomitant]
  6. OMEPRAZOLE [Concomitant]
  7. SIMVASTATIN [Concomitant]
  8. METOPROLOL [Concomitant]

REACTIONS (2)
  - BLOOD SODIUM DECREASED [None]
  - HYPOGLYCAEMIC COMA [None]
